FAERS Safety Report 17161476 (Version 10)
Quarter: 2021Q3

REPORT INFORMATION
  Report Type: Report from Study
  Country: CL (occurrence: CL)
  Receive Date: 20191216
  Receipt Date: 20210730
  Transmission Date: 20211014
  Serious: Yes (Other)
  Sender: FDA-Public Use
  Company Number: NVSC2019CL059237

PATIENT
  Age: 32 Year
  Sex: Female

DRUGS (3)
  1. KISQALI [Suspect]
     Active Substance: RIBOCICLIB
     Indication: BREAST CANCER
     Dosage: 600 MG
     Route: 048
     Dates: start: 20191112
  2. KISQALI [Suspect]
     Active Substance: RIBOCICLIB
     Dosage: 600 MG, QD
     Route: 048
     Dates: start: 20191112
  3. KISQALI [Suspect]
     Active Substance: RIBOCICLIB
     Dosage: 400 MG
     Route: 048
     Dates: start: 20191112

REACTIONS (26)
  - Sinus arrhythmia [Unknown]
  - Atrioventricular conduction time shortened [Unknown]
  - Poikilocytosis [Unknown]
  - Excessive granulation tissue [Unknown]
  - Sinus bradycardia [Unknown]
  - Electrocardiogram PR shortened [Unknown]
  - Anisocytosis [Unknown]
  - Haematocrit decreased [Unknown]
  - Low density lipoprotein increased [Unknown]
  - Haemoglobin decreased [Unknown]
  - High density lipoprotein increased [Unknown]
  - White blood cell count decreased [Unknown]
  - Red cell distribution width decreased [Unknown]
  - Blood alkaline phosphatase increased [Unknown]
  - Blood cholesterol increased [Unknown]
  - Cough [Unknown]
  - Electrocardiogram repolarisation abnormality [Unknown]
  - Red blood cell abnormality [Unknown]
  - Mean cell volume increased [Unknown]
  - Lymphocyte count decreased [Unknown]
  - Decreased immune responsiveness [Unknown]
  - Neutrophil count decreased [Unknown]
  - Drug ineffective [Unknown]
  - Macrocytosis [Unknown]
  - Platelet count decreased [Unknown]
  - Red blood cell count decreased [Unknown]

NARRATIVE: CASE EVENT DATE: 20191202
